FAERS Safety Report 25497874 (Version 10)
Quarter: 2025Q3

REPORT INFORMATION
  Report Type: Report from Study
  Country: US (occurrence: US)
  Receive Date: 20250701
  Receipt Date: 20250926
  Transmission Date: 20251020
  Serious: No
  Sender: ACADIA PHARMACEUTICALS
  Company Number: US-ACADIA PHARMACEUTICALS INC.-ACA-2025-TRF-007627

PATIENT
  Age: 35 Year
  Sex: Female
  Weight: 66.213 kg

DRUGS (12)
  1. DAYBUE [Suspect]
     Active Substance: TROFINETIDE
     Indication: Rett syndrome
     Dosage: 40 MILLILITER, BID, 40 ML BY PER G TUBE ROUTE IN THE MORNING AND 40 ML IN THE EVENING.
     Dates: start: 20250613
  2. DAYBUE [Suspect]
     Active Substance: TROFINETIDE
     Dosage: 20 MILLILITER, BID
  3. DAYBUE [Suspect]
     Active Substance: TROFINETIDE
     Dosage: 40 MILLILITER, BID
  4. DAYBUE [Suspect]
     Active Substance: TROFINETIDE
     Dosage: 30 MILLILITER, BID
  5. DIFLUCAN [Concomitant]
     Active Substance: FLUCONAZOLE
     Dates: start: 20250527
  6. CUVPOSA [GLYCOPYRRONIUM] [Concomitant]
     Dosage: 0.2 MG/ML, SIG: TAKE 5ML PER GTUBE TWICE DAILY
     Dates: start: 20240730
  7. PREVACID [Concomitant]
     Active Substance: LANSOPRAZOLE
     Dosage: SIG; TAKE 1 CAPSULE BY MOUTH TWICE DAILY BEFORE MEALS.
     Route: 048
     Dates: start: 20241115
  8. CLARITIN [Concomitant]
     Active Substance: LORATADINE
     Dosage: 10 MILLIGRAM, QD
     Dates: start: 20241021
  9. MELATONIN [Concomitant]
     Active Substance: MELATONIN
     Dosage: 3 MILLIGRAM, QD/SIG: 1 TABLET (3 MG) BY PER G TUBE ROUTE AT BEDTIME
     Dates: start: 20250421
  10. DIETARY SUPPLEMENT [Concomitant]
     Active Substance: DIETARY SUPPLEMENT
     Dates: start: 20250205
  11. LACIDOPHILIN [LACTOBACILLUS NOS] [Concomitant]
     Dates: start: 20250421
  12. VITAMIN K+D [Concomitant]
     Dosage: UNK UNK, QD
     Dates: start: 20240802

REACTIONS (4)
  - Diarrhoea [Not Recovered/Not Resolved]
  - Diarrhoea [Recovered/Resolved]
  - Drug ineffective [Not Recovered/Not Resolved]
  - Underdose [Not Recovered/Not Resolved]

NARRATIVE: CASE EVENT DATE: 20250601
